FAERS Safety Report 23924293 (Version 1)
Quarter: 2024Q2

REPORT INFORMATION
  Report Type: Spontaneous
  Country: FR (occurrence: FR)
  Receive Date: 20240531
  Receipt Date: 20240531
  Transmission Date: 20240716
  Serious: Yes (Death, Other)
  Sender: FDA-Public Use
  Company Number: FR-ELI_LILLY_AND_COMPANY-FR202405013871

PATIENT
  Age: 77 Year

DRUGS (2)
  1. GEMCITABINE HYDROCHLORIDE [Suspect]
     Active Substance: GEMCITABINE HYDROCHLORIDE
     Indication: Transitional cell carcinoma
     Dosage: 1000 MG/M2, CYCLIC
  2. CARBOPLATIN [Suspect]
     Active Substance: CARBOPLATIN
     Indication: Transitional cell carcinoma
     Dosage: UNK, CYCLICAL

REACTIONS (5)
  - Cardiac failure [Fatal]
  - Thrombocytopenia [Unknown]
  - Dilated cardiomyopathy [Unknown]
  - Anaemia [Unknown]
  - Off label use [Unknown]
